FAERS Safety Report 25727109 (Version 1)
Quarter: 2025Q3

REPORT INFORMATION
  Report Type: Spontaneous
  Country: US (occurrence: US)
  Receive Date: 20250826
  Receipt Date: 20250826
  Transmission Date: 20251020
  Serious: Yes (Life-Threatening, Hospitalization)
  Sender: MYLAN
  Company Number: US-MYLANLABS-2025M1072785

PATIENT
  Age: 10 Year
  Sex: Female

DRUGS (4)
  1. GEMCITABINE [Suspect]
     Active Substance: GEMCITABINE
     Indication: Ovarian germ cell endodermal sinus tumour
  2. OXALIPLATIN [Suspect]
     Active Substance: OXALIPLATIN
     Indication: Ovarian germ cell endodermal sinus tumour
  3. CEFEPIME [Concomitant]
     Active Substance: CEFEPIME HYDROCHLORIDE
     Indication: Antibiotic prophylaxis
  4. PACLITAXEL [Concomitant]
     Active Substance: PACLITAXEL
     Indication: Ovarian germ cell endodermal sinus tumour

REACTIONS (4)
  - Pulmonary veno-occlusive disease [Recovering/Resolving]
  - Venoocclusive liver disease [Recovering/Resolving]
  - Acute respiratory distress syndrome [Recovered/Resolved]
  - Off label use [Recovered/Resolved]
